FAERS Safety Report 10571746 (Version 1)
Quarter: 2014Q4

REPORT INFORMATION
  Report Type: Other
  Country: FR (occurrence: FR)
  Receive Date: 20141107
  Receipt Date: 20141107
  Transmission Date: 20150529
  Serious: Yes (Hospitalization)
  Sender: FDA-Public Use
  Company Number: FR-CUBIST PHARMACEUTICALS, INC.-2014CBST001528

PATIENT

DRUGS (4)
  1. CUBICIN [Suspect]
     Active Substance: DAPTOMYCIN
     Indication: OFF LABEL USE
     Dosage: 8.69 MG/KG, QD
     Route: 042
     Dates: start: 20141013, end: 20141021
  2. CUBICIN [Suspect]
     Active Substance: DAPTOMYCIN
     Indication: POST PROCEDURAL INFECTION
     Dosage: 4.34 MG/KG, QD
     Route: 042
     Dates: start: 20141001, end: 20141013
  3. CUBICIN [Suspect]
     Active Substance: DAPTOMYCIN
     Indication: DEVICE RELATED INFECTION
     Dosage: 500 MG, QD
     Route: 042
     Dates: start: 20141001, end: 20141013
  4. CUBICIN [Suspect]
     Active Substance: DAPTOMYCIN
     Dosage: 1 G, QD
     Route: 042
     Dates: start: 20141013, end: 20141021

REACTIONS (2)
  - Off label use [Unknown]
  - Interstitial lung disease [Not Recovered/Not Resolved]

NARRATIVE: CASE EVENT DATE: 20141016
